FAERS Safety Report 11455073 (Version 2)
Quarter: 2015Q3

REPORT INFORMATION
  Report Type: Spontaneous
  Country: BR (occurrence: BR)
  Receive Date: 20150903
  Receipt Date: 20150925
  Transmission Date: 20151125
  Serious: Yes (Hospitalization)
  Sender: FDA-Public Use
  Company Number: BR-GLAXOSMITHKLINE-BR2015GSK125501

PATIENT
  Age: 3 Year
  Sex: Female
  Weight: 11.7 kg

DRUGS (1)
  1. ZINNAT [Suspect]
     Active Substance: CEFUROXIME AXETIL
     Indication: URINARY TRACT INFECTION
     Dosage: 6.5 ML, BID, 70ML/250MG
     Route: 048
     Dates: start: 20150822, end: 20150825

REACTIONS (3)
  - Vomiting [Recovered/Resolved]
  - Product quality issue [Unknown]
  - Gastroenteritis [Recovered/Resolved]

NARRATIVE: CASE EVENT DATE: 20150822
